FAERS Safety Report 7263359-6 (Version None)
Quarter: 2011Q1

REPORT INFORMATION
  Report Type: 
  Country: None (occurrence: None)
  Receive Date: 20110130
  Receipt Date: 20100924
  Transmission Date: 20110831
  Serious: No
  Sender: FDA-Public Use
  Company Number: US-ABBOTT-10P-163-0673386-00

PATIENT
  Sex: Male

DRUGS (3)
  1. PROTONIX [Concomitant]
     Indication: PRODUCT USED FOR UNKNOWN INDICATION
  2. PREDNISONE [Concomitant]
     Indication: PRODUCT USED FOR UNKNOWN INDICATION
  3. HUMIRA [Suspect]
     Indication: CROHN'S DISEASE
     Dosage: 80 MG SECOND LOADING DOSE
     Dates: start: 20100910

REACTIONS (2)
  - INJECTION SITE PAIN [None]
  - INJECTION SITE EXTRAVASATION [None]
